FAERS Safety Report 4426192-6 (Version None)
Quarter: 2004Q3

REPORT INFORMATION
  Report Type: 
  Country: None (occurrence: None)
  Receive Date: 20040811
  Receipt Date: 20040727
  Transmission Date: 20050211
  Serious: Yes (Other)
  Sender: FDA-Public Use
  Company Number: USA040773727

PATIENT
  Age: 54 Year
  Sex: Male

DRUGS (2)
  1. HUMULIN N [Suspect]
     Dates: start: 19981101
  2. HUMULIN R [Suspect]
     Dates: start: 19981101

REACTIONS (4)
  - BLINDNESS [None]
  - BLOOD GLUCOSE INCREASED [None]
  - DRUG EFFECT DECREASED [None]
  - VISION BLURRED [None]
